FAERS Safety Report 9415248 (Version 1)
Quarter: 2013Q3

REPORT INFORMATION
  Report Type: Report from Study
  Country: MX (occurrence: MX)
  Receive Date: 20130723
  Receipt Date: 20130723
  Transmission Date: 20140515
  Serious: Yes (Other)
  Sender: FDA-Public Use
  Company Number: PHHY2013MX077948

PATIENT
  Age: 84 Year
  Sex: Female

DRUGS (8)
  1. ONBREZ [Suspect]
     Indication: CHRONIC OBSTRUCTIVE PULMONARY DISEASE
     Dosage: 300 UG, QD
     Dates: start: 201212, end: 201212
  2. ONBREZ [Suspect]
     Dosage: 300 UG, BID
     Dates: start: 201212
  3. PROCORALAN [Concomitant]
     Indication: CARDIAC DISORDER
     Dosage: 1 DF, DAILY
     Dates: start: 201101
  4. ASPIRINA [Concomitant]
     Indication: CARDIAC DISORDER
     Dosage: 1 DF, DAILY
     Dates: start: 201101
  5. PANTOPRAZOLE [Concomitant]
     Indication: HIATUS HERNIA
     Dosage: 3 DF, DAILY
     Dates: start: 201107
  6. PANTOPRAZOLE [Concomitant]
     Indication: GASTROOESOPHAGEAL REFLUX DISEASE
  7. MOTILIUM [Concomitant]
     Indication: HIATUS HERNIA
     Dosage: 3 DF, DAILY
     Dates: start: 201107
  8. PEMIX [Concomitant]
     Indication: HIATUS HERNIA
     Dosage: 3 DF, DAILY
     Dates: start: 201107

REACTIONS (5)
  - Hypertension [Unknown]
  - Renal disorder [Unknown]
  - Cataract [Unknown]
  - Diabetes mellitus [Unknown]
  - Incorrect dose administered [Not Recovered/Not Resolved]
